FAERS Safety Report 5120941-X (Version None)
Quarter: 2006Q4

REPORT INFORMATION
  Report Type: 
  Country: None (occurrence: None)
  Receive Date: 20061005
  Receipt Date: 20060927
  Transmission Date: 20070319
  Serious: Yes (Hospitalization)
  Sender: FDA-Public Use
  Company Number: KR-ROCHE-465010

PATIENT

DRUGS (5)
  1. RIVOTRIL [Suspect]
     Indication: DRUG USE FOR UNKNOWN INDICATION
     Dosage: DOSAGE REPORTED AS 6 X 0.5MG TABLETS PER DAY
     Route: 065
  2. AMITRIPTYLINE HCL [Concomitant]
  3. GABAPENTIN [Concomitant]
  4. ALPRAZOLAM [Concomitant]
  5. LORAZEPAM [Concomitant]

REACTIONS (1)
  - RHABDOMYOLYSIS [None]
